FAERS Safety Report 13396717 (Version 2)
Quarter: 2017Q2

REPORT INFORMATION
  Report Type: Spontaneous
  Country: US (occurrence: US)
  Receive Date: 20170403
  Receipt Date: 20170427
  Transmission Date: 20170830
  Serious: Yes (Other)
  Sender: FDA-Public Use
  Company Number: US-KOWA-17US000648

PATIENT

DRUGS (5)
  1. LIVALO [Suspect]
     Active Substance: PITAVASTATIN CALCIUM
     Indication: BLOOD CHOLESTEROL INCREASED
     Dosage: 2 MG, UNK
     Dates: start: 2014, end: 2014
  2. METAMUCIL [Concomitant]
     Active Substance: PLANTAGO SEED
     Indication: PROPHYLAXIS
     Dosage: UNK
  3. COLACE [Concomitant]
     Active Substance: DOCUSATE SODIUM
     Indication: PROPHYLAXIS
     Dosage: UNK
  4. LIVALO [Suspect]
     Active Substance: PITAVASTATIN CALCIUM
     Dosage: 2 MG, QD
     Dates: start: 201703, end: 20170330
  5. URSO FORTE [Concomitant]
     Active Substance: URSODIOL
     Indication: HEPATIC ENZYME
     Dosage: UNK
     Dates: start: 2001

REACTIONS (3)
  - Constipation [Recovered/Resolved]
  - Pain [Recovering/Resolving]
  - Anal fissure [Recovered/Resolved]

NARRATIVE: CASE EVENT DATE: 2014
